FAERS Safety Report 10431356 (Version 2)
Quarter: 2014Q3

REPORT INFORMATION
  Report Type: Report from Study
  Country: JP (occurrence: JP)
  Receive Date: 20140904
  Receipt Date: 20140904
  Transmission Date: 20150326
  Serious: Yes (Hospitalization)
  Sender: FDA-Public Use
  Company Number: JP-B.I. PHARMACEUTICALS,INC./RIDGEFIELD-2007-BP-00887NB

PATIENT
  Age: 0 Day
  Sex: Male
  Weight: 2.52 kg

DRUGS (15)
  1. VIRAMUNE [Suspect]
     Active Substance: NEVIRAPINE
     Indication: HIV INFECTION
     Dosage: 200 MG
     Route: 015
     Dates: start: 20040922, end: 20040925
  2. EPIVIR [Suspect]
     Active Substance: LAMIVUDINE
     Indication: HIV INFECTION
     Dosage: 300 MG
     Route: 015
     Dates: start: 20040922, end: 20040923
  3. LAMIVUDINE. [Suspect]
     Active Substance: LAMIVUDINE
     Dosage: 1.4 ML
     Route: 048
     Dates: start: 20041026, end: 20041118
  4. NELFINAVIR MESILATE [Suspect]
     Active Substance: NELFINAVIR MESYLATE
     Dosage: 560 MG
     Route: 048
     Dates: start: 20041026, end: 20041118
  5. ZIDOVUDINE. [Suspect]
     Active Substance: ZIDOVUDINE
     Indication: PRODUCT USED FOR UNKNOWN INDICATION
     Route: 042
     Dates: start: 20040923, end: 20040924
  6. LAMIVUDINE. [Suspect]
     Active Substance: LAMIVUDINE
     Indication: PRODUCT USED FOR UNKNOWN INDICATION
     Dosage: 1 ML
     Route: 048
     Dates: start: 20040928, end: 20041025
  7. VIRAMUNE [Suspect]
     Active Substance: NEVIRAPINE
     Indication: HIV INFECTION
     Dosage: 5 MG
     Route: 048
     Dates: start: 20040925, end: 20040925
  8. ZIDOVUDINE. [Suspect]
     Active Substance: ZIDOVUDINE
     Dosage: 1 ML
     Route: 048
     Dates: start: 20040926, end: 20041006
  9. ZIDOVUDINE. [Suspect]
     Active Substance: ZIDOVUDINE
     Dosage: 2.1 ML
     Route: 048
     Dates: start: 20041026, end: 20041118
  10. NELFINAVIR MESILATE [Suspect]
     Active Substance: NELFINAVIR MESYLATE
     Indication: PRODUCT USED FOR UNKNOWN INDICATION
     Dosage: 400 MG
     Route: 048
     Dates: start: 20040928, end: 20041025
  11. VIRACEPT [Concomitant]
     Active Substance: NELFINAVIR MESYLATE
     Indication: PRODUCT USED FOR UNKNOWN INDICATION
     Dosage: 2500 MG
     Route: 063
     Dates: start: 20040924, end: 20040930
  12. RETROVIR [Suspect]
     Active Substance: ZIDOVUDINE
     Dosage: 400 MG
     Route: 063
     Dates: start: 20040924, end: 20040930
  13. EPIVIR [Suspect]
     Active Substance: LAMIVUDINE
     Dosage: 300 MG
     Route: 063
     Dates: start: 20040924, end: 20040930
  14. ZIDOVUDINE. [Suspect]
     Active Substance: ZIDOVUDINE
     Dosage: 1.68 ML
     Route: 048
     Dates: start: 20041007, end: 20041025
  15. RETROVIR [Suspect]
     Active Substance: ZIDOVUDINE
     Indication: HIV INFECTION
     Dosage: 800 MG
     Route: 015
     Dates: start: 20040922, end: 20040923

REACTIONS (3)
  - Epilepsy [Not Recovered/Not Resolved]
  - Premature baby [Unknown]
  - Anaemia [Recovered/Resolved]

NARRATIVE: CASE EVENT DATE: 20040923
